FAERS Safety Report 21312772 (Version 1)
Quarter: 2022Q3

REPORT INFORMATION
  Report Type: Spontaneous
  Country: US (occurrence: US)
  Receive Date: 20220909
  Receipt Date: 20220909
  Transmission Date: 20221027
  Serious: No
  Sender: FDA-Public Use
  Company Number: US-BRISTOL-MYERS SQUIBB COMPANY-2022-103340

PATIENT
  Age: 74 Year
  Sex: Male

DRUGS (1)
  1. REVLIMID [Suspect]
     Active Substance: LENALIDOMIDE
     Indication: Plasma cell myeloma
     Dosage: FREQUENCY - 1 CAPSULE EVERYDAY ON DAYS 1 - 21 THEN NO CAPSULE ON DAYS 22-28
     Route: 048
     Dates: start: 20190125

REACTIONS (1)
  - Escherichia infection [Recovered/Resolved]
